FAERS Safety Report 6681161-0 (Version None)
Quarter: 2010Q2

REPORT INFORMATION
  Report Type: 
  Country: None (occurrence: None)
  Receive Date: 20100414
  Receipt Date: 20100224
  Transmission Date: 20101027
  Serious: Yes (Other)
  Sender: FDA-Public Use
  Company Number: US-BAYER-201015405NA

PATIENT
  Age: 54 Year
  Sex: Male

DRUGS (1)
  1. ULTRAVIST 300 [Suspect]
     Indication: COMPUTERISED TOMOGRAM
     Dosage: TOTAL DAILY DOSE: 100 ML
     Route: 042
     Dates: start: 20100224, end: 20100224

REACTIONS (6)
  - ERYTHEMA [None]
  - EYE SWELLING [None]
  - LIP SWELLING [None]
  - SNEEZING [None]
  - SWOLLEN TONGUE [None]
  - URTICARIA [None]
